FAERS Safety Report 5840846-6 (Version None)
Quarter: 2008Q3

REPORT INFORMATION
  Report Type: 
  Country: None (occurrence: None)
  Receive Date: 20080811
  Receipt Date: 20080724
  Transmission Date: 20090109
  Serious: No
  Sender: FDA-Public Use
  Company Number: US-BOEHRINGER INGELHEIM GMBH, GERMANY-2008-BP-11684BP

PATIENT

DRUGS (1)
  1. FLOMAX [Suspect]

REACTIONS (4)
  - DYSURIA [None]
  - LIMB DISCOMFORT [None]
  - MUSCLE FATIGUE [None]
  - MUSCULAR WEAKNESS [None]
